FAERS Safety Report 8187053-2 (Version None)
Quarter: 2012Q1

REPORT INFORMATION
  Report Type: 
  Country: None (occurrence: None)
  Receive Date: 20120306
  Receipt Date: 20120306
  Transmission Date: 20120608
  Serious: Yes (Hospitalization)
  Sender: FDA-Public Use
  Company Number: DE-ABBOTT-11P-062-0837772-00

PATIENT
  Sex: Female
  Weight: 115 kg

DRUGS (2)
  1. METHOTREXATE [Suspect]
     Indication: PSORIATIC ARTHROPATHY
     Dates: start: 20110127
  2. HUMIRA [Suspect]
     Indication: PSORIATIC ARTHROPATHY
     Dates: start: 20110329, end: 20110809

REACTIONS (5)
  - UPPER AIRWAY OBSTRUCTION [None]
  - PHARYNGITIS [None]
  - ECZEMA [None]
  - COUGH [None]
  - FATIGUE [None]
